FAERS Safety Report 7819347-1 (Version None)
Quarter: 2011Q4

REPORT INFORMATION
  Report Type: 
  Country: None (occurrence: None)
  Receive Date: 20111018
  Receipt Date: 20101118
  Transmission Date: 20120403
  Serious: No
  Sender: FDA-Public Use
  Company Number: US-ASTRAZENECA-2010SE55207

PATIENT
  Age: 19216 Day
  Sex: Female
  Weight: 102.5 kg

DRUGS (4)
  1. SYMBICORT [Suspect]
     Dosage: 160/4.5 2 PUFFS BID
     Route: 055
     Dates: end: 20101117
  2. CHEMO [Concomitant]
  3. BP MEDS [Concomitant]
  4. ANTIDEPRESSANT [Concomitant]

REACTIONS (2)
  - DYSPNOEA [None]
  - DRUG DOSE OMISSION [None]
